FAERS Safety Report 22542129 (Version 1)
Quarter: 2023Q2

REPORT INFORMATION
  Report Type: Spontaneous
  Country: CN (occurrence: CN)
  Receive Date: 20230609
  Receipt Date: 20230609
  Transmission Date: 20230722
  Serious: Yes (Other)
  Sender: FDA-Public Use
  Company Number: CN-FreseniusKabi-FK202307882

PATIENT
  Age: 60 Year
  Sex: Male
  Weight: 65 kg

DRUGS (1)
  1. INTRALIPID [Suspect]
     Active Substance: EGG PHOSPHOLIPIDS\GLYCERIN\SOYBEAN OIL
     Indication: Nutritional supplementation
     Route: 041
     Dates: start: 20230529, end: 20230529

REACTIONS (4)
  - Chills [Recovered/Resolved]
  - Respiration abnormal [Recovered/Resolved]
  - Palpitations [Recovered/Resolved]
  - Chest discomfort [Recovered/Resolved]

NARRATIVE: CASE EVENT DATE: 20230529
